FAERS Safety Report 20430666 (Version 2)
Quarter: 2022Q1

REPORT INFORMATION
  Report Type: Report from Study
  Country: US (occurrence: US)
  Receive Date: 20220204
  Receipt Date: 20220214
  Transmission Date: 20220423
  Serious: Yes (Hospitalization, Other)
  Sender: FDA-Public Use
  Company Number: US-TAKEDA-2022TUS006411

PATIENT
  Age: 71 Year
  Sex: Male

DRUGS (8)
  1. TEDUGLUTIDE [Suspect]
     Active Substance: TEDUGLUTIDE
     Indication: Short-bowel syndrome
     Dosage: 5.2 MILLIGRAM, QD
     Route: 065
     Dates: start: 20160324, end: 20160829
  2. TEDUGLUTIDE [Suspect]
     Active Substance: TEDUGLUTIDE
     Indication: Short-bowel syndrome
     Dosage: 5.2 MILLIGRAM, QD
     Route: 065
     Dates: start: 20160324, end: 20160829
  3. TEDUGLUTIDE [Suspect]
     Active Substance: TEDUGLUTIDE
     Indication: Short-bowel syndrome
     Dosage: 5.2 MILLIGRAM, QD
     Route: 065
     Dates: start: 20160324, end: 20160829
  4. TEDUGLUTIDE [Suspect]
     Active Substance: TEDUGLUTIDE
     Indication: Short-bowel syndrome
     Dosage: 5.2 MILLIGRAM, QD
     Route: 065
     Dates: start: 20160324, end: 20160829
  5. SUCRALFATE [Concomitant]
     Active Substance: SUCRALFATE
     Indication: Short-bowel syndrome
     Dosage: 1 GRAM, QID
     Route: 048
     Dates: start: 20170720
  6. PANCRELIPASE [Concomitant]
     Active Substance: PANCRELIPASE
     Indication: Fatty acid deficiency
     Dosage: 24000 INTERNATIONAL UNIT, TID
     Route: 048
     Dates: start: 20180328
  7. LOPERAMIDE [Concomitant]
     Active Substance: LOPERAMIDE
     Indication: Short-bowel syndrome
     Dosage: 4 MILLIGRAM, QID
     Route: 048
     Dates: start: 20171004
  8. FERROUS SULFATE [Concomitant]
     Active Substance: FERROUS SULFATE
     Indication: Malnutrition
     Dosage: 325 MILLIGRAM, QD
     Route: 048
     Dates: start: 20161111

REACTIONS (4)
  - Hyponatraemia [Recovered/Resolved]
  - Hypokalaemia [Recovered/Resolved]
  - Hypermagnesaemia [Recovered/Resolved]
  - Hypocalcaemia [Recovered/Resolved]

NARRATIVE: CASE EVENT DATE: 20180426
